FAERS Safety Report 17006641 (Version 2)
Quarter: 2019Q4

REPORT INFORMATION
  Report Type: Spontaneous
  Country: CN (occurrence: CN)
  Receive Date: 20191107
  Receipt Date: 20191108
  Transmission Date: 20200122
  Serious: Yes (Life-Threatening)
  Sender: FDA-Public Use
  Company Number: CN-JNJFOC-20191048112

PATIENT
  Age: 69 Year
  Sex: Male
  Weight: 70 kg

DRUGS (1)
  1. DARZALEX [Suspect]
     Active Substance: DARATUMUMAB
     Indication: PLASMA CELL MYELOMA
     Dosage: 2 BOTTLES OF INJECTION (400MG/20ML/) AND 3 BOTTLES OF INJECTION (100MG/5ML/) ONE-TIME INFUSION
     Route: 065
     Dates: start: 201910

REACTIONS (2)
  - Haematochezia [Unknown]
  - Crossmatch incompatible [Not Recovered/Not Resolved]

NARRATIVE: CASE EVENT DATE: 20191030
